FAERS Safety Report 5017942-9 (Version None)
Quarter: 2006Q2

REPORT INFORMATION
  Report Type: 
  Country: None (occurrence: None)
  Receive Date: 20060605
  Receipt Date: 20060531
  Transmission Date: 20061013
  Serious: Yes (Other)
  Sender: FDA-Public Use
  Company Number: CA-GLAXOSMITHKLINE-A0607803A

PATIENT
  Age: 54 Year
  Sex: Female

DRUGS (1)
  1. ZYBAN [Suspect]
     Indication: DRUG USE FOR UNKNOWN INDICATION
     Dosage: 300MG UNKNOWN
     Route: 065

REACTIONS (5)
  - AGITATION [None]
  - ANXIETY [None]
  - FEAR [None]
  - PHOBIA [None]
  - SUICIDAL IDEATION [None]
